FAERS Safety Report 8287532-3 (Version None)
Quarter: 2012Q2

REPORT INFORMATION
  Report Type: 
  Country: None (occurrence: None)
  Receive Date: 20120416
  Receipt Date: 20120403
  Transmission Date: 20120825
  Serious: Yes (Other)
  Sender: FDA-Public Use
  Company Number: US-ROCHE-1055754

PATIENT
  Sex: Female

DRUGS (6)
  1. TAXOL [Suspect]
     Indication: BREAST CANCER
  2. HERCEPTIN [Suspect]
     Indication: BREAST CANCER
     Route: 037
  3. TYKERB [Suspect]
     Indication: BREAST CANCER
  4. HERCEPTIN [Suspect]
     Route: 037
  5. NAVELBINE [Suspect]
     Indication: BREAST CANCER
     Route: 042
  6. XELODA [Suspect]
     Indication: BREAST CANCER

REACTIONS (2)
  - BRAIN NEOPLASM [None]
  - METASTASES TO SPINE [None]
